FAERS Safety Report 5844209-9 (Version None)
Quarter: 2008Q3

REPORT INFORMATION
  Report Type: 
  Country: None (occurrence: None)
  Receive Date: 20080813
  Receipt Date: 20080804
  Transmission Date: 20090109
  Serious: Yes (Hospitalization)
  Sender: FDA-Public Use
  Company Number: FR-WYE-H05502208

PATIENT
  Sex: Female

DRUGS (3)
  1. CORDARONE [Suspect]
     Indication: ARRHYTHMIA
     Route: 048
     Dates: end: 20080720
  2. EXELON [Interacting]
     Indication: DEMENTIA
     Route: 048
  3. AVLOCARDYL [Interacting]
     Indication: ARRHYTHMIA
     Route: 048
     Dates: end: 20080720

REACTIONS (4)
  - BRADYCARDIA [None]
  - DRUG INTERACTION [None]
  - ELECTROCARDIOGRAM QRS COMPLEX PROLONGED [None]
  - LOSS OF CONSCIOUSNESS [None]
